FAERS Safety Report 6998323-5 (Version None)
Quarter: 2010Q3

REPORT INFORMATION
  Report Type: 
  Country: None (occurrence: None)
  Receive Date: 20100920
  Receipt Date: 20100907
  Transmission Date: 20110219
  Serious: Yes (Other)
  Sender: FDA-Public Use
  Company Number: FI-JNJFOC-20100901670

PATIENT
  Age: 43 Year
  Sex: Female

DRUGS (7)
  1. REMICADE [Suspect]
     Indication: CROHN'S DISEASE
     Dosage: 5 INFUSIONS TOTAL (ALSO REPORTED AS 3 INFUSIONS TOTAL)
     Route: 042
  2. REMICADE [Suspect]
     Dosage: 5 INFUSIONS TOTAL (ALSO REPORTED AS 3 INFUSIONS TOTAL)
     Route: 042
  3. IDEOS [Concomitant]
  4. MEDROL [Concomitant]
  5. PRIMASPAN [Concomitant]
  6. PROGRAF [Concomitant]
  7. AZAMUN [Concomitant]

REACTIONS (4)
  - HAEMOGLOBIN DECREASED [None]
  - IMMUNOSUPPRESSANT DRUG LEVEL INCREASED [None]
  - LEUKOPENIA [None]
  - LIVER FUNCTION TEST ABNORMAL [None]
